FAERS Safety Report 10536763 (Version 1)
Quarter: 2014Q4

REPORT INFORMATION
  Report Type: Spontaneous
  Country: US (occurrence: US)
  Receive Date: 20141022
  Receipt Date: 20141022
  Transmission Date: 20150529
  Serious: No
  Sender: FDA-Public Use
  Company Number: US-RECKITT BENCKISER PHARMACEUTICAL, INC-RB-70031-2014

PATIENT

DRUGS (3)
  1. SUBOXONE [Suspect]
     Active Substance: BUPRENORPHINE HYDROCHLORIDE\NALOXONE HYDROCHLORIDE
     Dosage: 8 MG, QD
     Route: 060
     Dates: start: 20140714
  2. NORCO [Suspect]
     Active Substance: ACETAMINOPHEN\HYDROCODONE BITARTRATE
     Indication: PAIN
     Dosage: UNKNOWN
     Route: 048
     Dates: start: 20140710, end: 20140714
  3. SUBOXONE [Suspect]
     Active Substance: BUPRENORPHINE HYDROCHLORIDE\NALOXONE HYDROCHLORIDE
     Indication: DRUG DEPENDENCE
     Dosage: 8 MG, QD
     Route: 060
     Dates: end: 20140707

REACTIONS (14)
  - VIIth nerve paralysis [Recovered/Resolved]
  - Drug withdrawal syndrome [Unknown]
  - Swelling face [Recovered/Resolved]
  - Decreased appetite [Recovered/Resolved]
  - Feeling abnormal [Not Recovered/Not Resolved]
  - Respiratory rate decreased [Recovered/Resolved]
  - Antisocial behaviour [Recovered/Resolved]
  - Bone abscess [Recovered/Resolved]
  - Paranoia [Not Recovered/Not Resolved]
  - Pain [Recovered/Resolved]
  - Emotional disorder [Recovered/Resolved]
  - Periodontal disease [Not Recovered/Not Resolved]
  - Disturbance in attention [Not Recovered/Not Resolved]
  - Sinusitis [Recovered/Resolved]

NARRATIVE: CASE EVENT DATE: 201401
